FAERS Safety Report 10025711 (Version 1)
Quarter: 2014Q1

REPORT INFORMATION
  Report Type: Report from Study
  Country: US (occurrence: US)
  Receive Date: 20140320
  Receipt Date: 20140320
  Transmission Date: 20141002
  Serious: Yes (Hospitalization)
  Sender: FDA-Public Use
  Company Number: US-ABBVIE-14P-163-1213569-00

PATIENT
  Age: 58 Year
  Sex: Male
  Weight: 90.8 kg

DRUGS (17)
  1. ANDROGEL [Suspect]
     Indication: BLOOD TESTOSTERONE DECREASED
     Dosage: 4 PKTS
     Route: 061
     Dates: end: 2013
  2. ANDROGEL [Suspect]
     Dosage: 1 PKT
     Route: 061
     Dates: start: 201312, end: 201312
  3. ANDROGEL [Suspect]
     Dosage: 4 PKTS
     Route: 061
     Dates: start: 201312
  4. GLIPIZIDE [Concomitant]
     Indication: DIABETES MELLITUS
  5. GEMFIBROZIL [Concomitant]
     Indication: BLOOD CHOLESTEROL INCREASED
  6. SPIRONOLACTON [Concomitant]
     Indication: FLUID RETENTION
  7. NORSTAT [Concomitant]
     Indication: ATRIAL FIBRILLATION
  8. WARFARIN [Concomitant]
     Indication: ANTICOAGULANT THERAPY
  9. DIGOXIN [Concomitant]
     Indication: ATRIAL FIBRILLATION
  10. PRAVASTATIN [Concomitant]
     Indication: BLOOD CHOLESTEROL INCREASED
  11. METFORMIN [Concomitant]
     Indication: DIABETES MELLITUS
  12. LISINOPRIL [Concomitant]
     Indication: HYPERTENSION
  13. FUROSEMIDE [Concomitant]
     Indication: FLUID RETENTION
  14. CARVEDILOL [Concomitant]
     Indication: ATRIAL FIBRILLATION
  15. ASPIRIN [Concomitant]
     Indication: CARDIAC DISORDER
  16. ANTIBIOTICS [Concomitant]
     Indication: LOCALISED INFECTION
     Route: 042
  17. ANTIBIOTICS [Concomitant]
     Indication: PNEUMONIA

REACTIONS (4)
  - Localised infection [Recovered/Resolved]
  - Confusional state [Recovered/Resolved]
  - Pneumonia [Recovered/Resolved]
  - Sputum discoloured [Recovered/Resolved]
